FAERS Safety Report 5043463-3 (Version None)
Quarter: 2006Q3

REPORT INFORMATION
  Report Type: 
  Country: None (occurrence: None)
  Receive Date: 20060705
  Receipt Date: 20060628
  Transmission Date: 20061208
  Serious: Yes (Hospitalization)
  Sender: FDA-Public Use
  Company Number: US-BOEHRINGER INGELHEIM PHARMACEUTICALS, INC.-2006-BP-07435BP

PATIENT
  Age: 60 Year
  Sex: Female

DRUGS (9)
  1. COMBIVENT [Suspect]
  2. XOPENEX [Suspect]
     Indication: CHRONIC OBSTRUCTIVE PULMONARY DISEASE
     Route: 055
     Dates: start: 20030101
  3. XOPENEX [Suspect]
     Indication: ASTHMA
  4. FLOVENT [Concomitant]
     Route: 055
  5. COUMADIN [Concomitant]
     Route: 048
  6. ACTONEL [Concomitant]
     Route: 048
  7. IPRATROPIUM BROMIDE [Concomitant]
  8. WARFARIN SODIUM [Concomitant]
  9. OXYGEN [Concomitant]

REACTIONS (6)
  - ANOREXIA [None]
  - ASCITES [None]
  - BRONCHITIS [None]
  - DRUG INEFFECTIVE [None]
  - PNEUMONIA [None]
  - WEIGHT INCREASED [None]
